FAERS Safety Report 8871260 (Version 1)
Quarter: 2012Q4

REPORT INFORMATION
  Report Type: 
  Country: US (occurrence: US)
  Receive Date: 20121026
  Receipt Date: 20121026
  Transmission Date: 20130627
  Serious: No
  Sender: FDA-Public Use
  Company Number: US-AMGEN-USASP2012041986

PATIENT
  Age: 54 Year
  Sex: Female
  Weight: 134.24 kg

DRUGS (3)
  1. ENBREL [Suspect]
     Indication: PSORIATIC ARTHROPATHY
     Dosage: 50 mg, 2 times/wk
  2. HUMIRA [Concomitant]
     Dosage: 40 mg/0.8
     Route: 058
  3. ASPIRINA ADULTOS [Concomitant]
     Dosage: 81 mg, UNK
     Route: 048

REACTIONS (1)
  - Drug ineffective [Unknown]
